FAERS Safety Report 13491346 (Version 3)
Quarter: 2018Q2

REPORT INFORMATION
  Report Type: Report from Study
  Country: JP (occurrence: JP)
  Receive Date: 20170427
  Receipt Date: 20180622
  Transmission Date: 20180711
  Serious: Yes (Death, Hospitalization, Other)
  Sender: FDA-Public Use
  Company Number: JP-AMGEN-JPNNI2017062405

PATIENT
  Age: 78 Year
  Sex: Female

DRUGS (24)
  1. CARFILZOMIB [Suspect]
     Active Substance: CARFILZOMIB
     Dosage: 27 MG/M2, UNK
     Route: 041
     Dates: start: 20170113, end: 20170113
  2. CARFILZOMIB [Suspect]
     Active Substance: CARFILZOMIB
     Dosage: 27 MG/M2, UNK
     Route: 041
     Dates: start: 20170203, end: 20170203
  3. CARFILZOMIB [Suspect]
     Active Substance: CARFILZOMIB
     Dosage: 10 MG/M2, UNK
     Route: 041
     Dates: start: 20161027, end: 20161027
  4. CARFILZOMIB [Suspect]
     Active Substance: CARFILZOMIB
     Dosage: 16 MG/M2, UNK
     Route: 041
     Dates: start: 20161110, end: 20161111
  5. REVLIMID [Suspect]
     Active Substance: LENALIDOMIDE
     Indication: PLASMA CELL MYELOMA
     Dosage: 5 MG, UNK
     Route: 048
     Dates: start: 20161020, end: 20161027
  6. DEXAMETHASONE. [Suspect]
     Active Substance: DEXAMETHASONE
     Dosage: 20 MG, QWK
     Route: 065
     Dates: start: 20161208, end: 20161222
  7. DEXAMETHASONE. [Suspect]
     Active Substance: DEXAMETHASONE
     Dosage: 20 MG, UNK
     Route: 065
     Dates: start: 20170203, end: 20170203
  8. CARFILZOMIB [Suspect]
     Active Substance: CARFILZOMIB
     Dosage: UNK
     Route: 041
     Dates: start: 20161125, end: 20161125
  9. CARFILZOMIB [Suspect]
     Active Substance: CARFILZOMIB
     Dosage: 27 MG/M2, UNK
     Route: 041
     Dates: start: 20161208, end: 20161209
  10. CARFILZOMIB [Suspect]
     Active Substance: CARFILZOMIB
     Dosage: 27 MG/M2, UNK
     Route: 041
     Dates: start: 20161215, end: 20161216
  11. CARFILZOMIB [Suspect]
     Active Substance: CARFILZOMIB
     Dosage: 27 MG/M2, UNK
     Route: 041
     Dates: start: 20170106, end: 20170106
  12. CARFILZOMIB [Suspect]
     Active Substance: CARFILZOMIB
     Dosage: 20 MG/M2, UNK
     Route: 041
     Dates: start: 20170224, end: 20170224
  13. DEXAMETHASONE. [Suspect]
     Active Substance: DEXAMETHASONE
     Dosage: 20 MG, QWK
     Route: 065
     Dates: start: 20161110, end: 20161124
  14. DEXAMETHASONE. [Suspect]
     Active Substance: DEXAMETHASONE
     Dosage: 20 MG, UNK
     Route: 065
     Dates: start: 20170224, end: 20170224
  15. CARFILZOMIB [Suspect]
     Active Substance: CARFILZOMIB
     Dosage: 27 MG/M2, UNK
     Route: 041
     Dates: start: 20170120, end: 20170120
  16. CARFILZOMIB [Suspect]
     Active Substance: CARFILZOMIB
     Indication: PLASMA CELL MYELOMA
     Dosage: 10 MG/M2, UNK
     Route: 041
     Dates: start: 20161020, end: 20161021
  17. CARFILZOMIB [Suspect]
     Active Substance: CARFILZOMIB
     Dosage: 27 MG/M2, UNK
     Route: 041
     Dates: start: 20161124, end: 20161124
  18. REVLIMID [Suspect]
     Active Substance: LENALIDOMIDE
     Dosage: 5 MG, UNK
     Route: 048
     Dates: start: 20170203, end: 20170216
  19. CARFILZOMIB [Suspect]
     Active Substance: CARFILZOMIB
     Dosage: 27 MG/M2, UNK
     Route: 041
     Dates: start: 20161222, end: 20161223
  20. DEXAMETHASONE. [Suspect]
     Active Substance: DEXAMETHASONE
     Indication: PLASMA CELL MYELOMA
     Dosage: 20 MG, QWK
     Route: 065
     Dates: start: 20161020, end: 20161027
  21. ACICLOVIR [Concomitant]
     Active Substance: ACYCLOVIR
     Dosage: UNK
     Dates: end: 20170228
  22. CARFILZOMIB [Suspect]
     Active Substance: CARFILZOMIB
     Dosage: 27 MG/M2, UNK
     Route: 041
     Dates: start: 20161117, end: 20161118
  23. REVLIMID [Suspect]
     Active Substance: LENALIDOMIDE
     Dosage: 5 MG, UNK
     Route: 048
     Dates: start: 20170106, end: 20170126
  24. DEXAMETHASONE. [Suspect]
     Active Substance: DEXAMETHASONE
     Dosage: 20 MG, QWK
     Route: 065
     Dates: start: 20170106, end: 20170120

REACTIONS (3)
  - Disseminated intravascular coagulation [Recovered/Resolved]
  - Pneumonia cytomegaloviral [Recovered/Resolved]
  - Pancytopenia [Recovered/Resolved]

NARRATIVE: CASE EVENT DATE: 20161023
